FAERS Safety Report 23712896 (Version 1)
Quarter: 2024Q2

REPORT INFORMATION
  Report Type: Spontaneous
  Country: EG (occurrence: EG)
  Receive Date: 20240405
  Receipt Date: 20240405
  Transmission Date: 20240716
  Serious: Yes (Disabling)
  Sender: FDA-Public Use
  Company Number: EG-PFIZER INC-PV202400043112

PATIENT
  Age: 36 Year
  Sex: Female

DRUGS (3)
  1. CARBOPLATIN [Suspect]
     Active Substance: CARBOPLATIN
     Dosage: DOSE IS 200 MG DILUTED IN 250 ML NORMAL SALINE OVER 1 HR
     Dates: start: 20240217
  2. PACLITAXEL [Suspect]
     Active Substance: PACLITAXEL
     Dosage: DOSE IS 130 MG DILUTED IN 250 ML NORMAL SALINE OVER 1 HR
     Dates: start: 20240217, end: 2024
  3. PACLITAXEL [Suspect]
     Active Substance: PACLITAXEL
     Dosage: ON 2ND WEEK DOSE IS 120 MG DILUTED IN 250 ML NORMAL SALINE OVER 1 HR
     Dates: start: 2024

REACTIONS (3)
  - Pain in extremity [Not Recovered/Not Resolved]
  - Neuropathy peripheral [Not Recovered/Not Resolved]
  - Product preparation issue [Unknown]

NARRATIVE: CASE EVENT DATE: 20240201
